FAERS Safety Report 5472721-3 (Version None)
Quarter: 2007Q4

REPORT INFORMATION
  Report Type: 
  Country: None (occurrence: None)
  Receive Date: 20071001
  Receipt Date: 20061009
  Transmission Date: 20080405
  Serious: Yes (Other)
  Sender: FDA-Public Use
  Company Number: US-ASTRAZENECA-2006UW19570

PATIENT
  Age: 61 Year
  Sex: Female
  Weight: 83.9 kg

DRUGS (2)
  1. ARIMIDEX [Suspect]
     Indication: BREAST CANCER
     Route: 048
     Dates: start: 20050101
  2. EFFEXOR [Concomitant]
     Dates: start: 20050101

REACTIONS (2)
  - BONE EROSION [None]
  - BONE PAIN [None]
